FAERS Safety Report 12709993 (Version 4)
Quarter: 2017Q1

REPORT INFORMATION
  Report Type: Report from Study
  Country: HU (occurrence: HU)
  Receive Date: 20160902
  Receipt Date: 20170130
  Transmission Date: 20170428
  Serious: Yes (Other)
  Sender: FDA-Public Use
  Company Number: HU-AMGEN-USACT2016111971

PATIENT
  Sex: Female

DRUGS (8)
  1. MAGNE B6 [Concomitant]
     Active Substance: MAGNESIUM\PYRIDOXINE
     Dosage: UNK
  2. FEMARA [Concomitant]
     Active Substance: LETROZOLE
     Dosage: 2.5 UNK, UNK
     Dates: start: 20121227
  3. REMIFEMIN PLUS [Concomitant]
     Dosage: UNK
  4. AUGMENTIN DUO [Concomitant]
     Active Substance: AMOXICILLIN\CLAVULANATE POTASSIUM
     Indication: SINUSITIS
     Dosage: 2 G, BID, FOR SEVEN DAYS,  MORNING AND EVENING
     Route: 042
     Dates: start: 20160226, end: 20160708
  5. DENOSUMAB [Suspect]
     Active Substance: DENOSUMAB
     Indication: BREAST CANCER
     Dosage: 1.7 ML TO 120 MG, EVERY 12 WEEKS ONCE
     Route: 058
     Dates: start: 20120712, end: 20151223
  6. LETROX [Concomitant]
     Active Substance: LEVOTHYROXINE SODIUM
     Dosage: 75 MG, QD, MORNING
  7. IDEOS [Concomitant]
     Active Substance: CALCIUM CARBONATE\CHOLECALCIFEROL
     Dosage: UNK
  8. CALCIVID [Concomitant]
     Dosage: UNK

REACTIONS (1)
  - Periodontitis [Recovered/Resolved]

NARRATIVE: CASE EVENT DATE: 20160524
